FAERS Safety Report 7001395-5 (Version None)
Quarter: 2010Q3

REPORT INFORMATION
  Report Type: 
  Country: None (occurrence: None)
  Receive Date: 20100920
  Receipt Date: 20100203
  Transmission Date: 20110219
  Serious: Yes (Other)
  Sender: FDA-Public Use
  Company Number: US-ASTRAZENECA-2009UW20442

PATIENT
  Age: 433 Month
  Sex: Female
  Weight: 154.2 kg

DRUGS (15)
  1. SEROQUEL [Suspect]
     Indication: SCHIZOPHRENIA
     Route: 048
     Dates: start: 20060501, end: 20060601
  2. SEROQUEL [Suspect]
     Route: 048
     Dates: start: 20070101
  3. ABILIFY [Concomitant]
     Dates: start: 20050101
  4. GEODON [Concomitant]
     Dates: start: 20030101, end: 20050101
  5. HALDOL [Concomitant]
     Dates: start: 20090601
  6. HALDOL [Concomitant]
     Dates: start: 20030101, end: 20090601
  7. RISPERDAL [Concomitant]
     Dates: start: 20030101, end: 20050101
  8. THORAZINE [Concomitant]
     Dates: start: 19900101
  9. ZYPREXA [Concomitant]
     Dates: start: 19950101
  10. SYMBYAX [Concomitant]
     Dates: start: 19950101
  11. COGETIN [Concomitant]
  12. LITHIUM [Concomitant]
  13. DEPAKOTE [Concomitant]
     Dates: start: 20060101
  14. BENZATROPINE [Concomitant]
     Dates: start: 20030101, end: 20050101
  15. EFFEXOR [Concomitant]

REACTIONS (4)
  - DIABETES MELLITUS [None]
  - OBESITY [None]
  - PANCREATITIS [None]
  - WEIGHT INCREASED [None]
